FAERS Safety Report 4663347-X (Version None)
Quarter: 2005Q2

REPORT INFORMATION
  Report Type: 
  Country: None (occurrence: None)
  Receive Date: 20050517
  Receipt Date: 20050506
  Transmission Date: 20051028
  Serious: Yes (Other)
  Sender: FDA-Public Use
  Company Number: US-JNJFOC-20050502532

PATIENT
  Age: 90 Year
  Sex: Female

DRUGS (6)
  1. TYLENOL (CAPLET) [Suspect]
     Route: 049
  2. TYLENOL (CAPLET) [Suspect]
     Indication: ARTHRITIS
     Route: 049
  3. DOXYLAMINE SUCCINATE [Suspect]
     Indication: DRUG USE FOR UNKNOWN INDICATION
     Dosage: 1/2 HS, PO
     Route: 049
  4. BETAPACE [Concomitant]
  5. PREDNISONE [Concomitant]
     Route: 049
  6. COUMADIN [Concomitant]
     Route: 049

REACTIONS (3)
  - ATRIAL FIBRILLATION [None]
  - PANIC ATTACK [None]
  - SOMNOLENCE [None]
